FAERS Safety Report 9193934 (Version 1)
Quarter: 2013Q1

REPORT INFORMATION
  Report Type: Spontaneous
  Country: US (occurrence: None)
  Receive Date: 20120703
  Receipt Date: 20120703
  Transmission Date: 20140127
  Serious: No
  Sender: FDA-Public Use
  Company Number: PHEH2012US008372

PATIENT
  Age: 72 Year
  Sex: Female

DRUGS (1)
  1. GILENYA (FTY) CAPSULE, 0.5MG [Suspect]
     Route: 048
     Dates: start: 20120111

REACTIONS (7)
  - Faecal incontinence [None]
  - Speech disorder [None]
  - General physical health deterioration [None]
  - Nuclear magnetic resonance imaging brain abnormal [None]
  - Urinary incontinence [None]
  - Gait disturbance [None]
  - CD4 lymphocytes decreased [None]
